FAERS Safety Report 10774942 (Version 1)
Quarter: 2015Q1

REPORT INFORMATION
  Report Type: Spontaneous
  Country: US (occurrence: None)
  Receive Date: 20150206
  Receipt Date: 20150206
  Transmission Date: 20150721
  Serious: Yes (Hospitalization)
  Sender: FDA-Public Use
  Company Number: HYP201409-000071

PATIENT
  Age: 7 Year
  Sex: Female
  Weight: 20.8 kg

DRUGS (4)
  1. CALCIUM [Concomitant]
     Active Substance: CALCIUM
  2. CITRULLINE [Concomitant]
     Active Substance: CITRULLINE
  3. RAVICTI [Suspect]
     Active Substance: GLYCEROL PHENYLBUTYRATE
     Indication: UREA CYCLE ENZYME DEFICIENCY
     Dates: start: 201308, end: 20140912
  4. MULTIVITAMIN/00097801/(ASCORBIC ACID, CALCIUM PANTOTHENATE, ERGOCALCIFEROL, NICOTINAMIDE, PYRIDOXINE HYDROHCLORIDE, RETINOL, RIBOFLAVIN, THIAMINE HYDROCHLORIDE) [Concomitant]

REACTIONS (4)
  - Vomiting [None]
  - Hyperammonaemic crisis [None]
  - Abdominal pain [None]
  - Dehydration [None]

NARRATIVE: CASE EVENT DATE: 20140911
